FAERS Safety Report 6592725-7 (Version None)
Quarter: 2010Q1

REPORT INFORMATION
  Report Type: 
  Country: None (occurrence: None)
  Receive Date: 20100212
  Receipt Date: 20100129
  Transmission Date: 20100710
  Serious: Yes (Hospitalization, Other)
  Sender: FDA-Public Use
  Company Number: 8055306

PATIENT
  Sex: Female
  Weight: 80 kg

DRUGS (6)
  1. KEPPRA [Suspect]
     Dosage: 250 MG BID, 500 MG BID
     Dates: start: 20091013, end: 20090101
  2. KEPPRA [Suspect]
     Dosage: 250 MG BID, 500 MG BID
     Dates: start: 20090101
  3. ORAL CONTRACEPTIVE NOS [Concomitant]
  4. FLUOXETINE [Concomitant]
  5. PREDNISOLONE [Concomitant]
  6. OMEPRAZOLE [Concomitant]

REACTIONS (1)
  - STEVENS-JOHNSON SYNDROME [None]
